FAERS Safety Report 18278725 (Version 1)
Quarter: 2020Q3

REPORT INFORMATION
  Report Type: Spontaneous
  Country: GB (occurrence: GB)
  Receive Date: 20200917
  Receipt Date: 20200917
  Transmission Date: 20201103
  Serious: Yes (Hospitalization)
  Sender: FDA-Public Use
  Company Number: GB-MYLANLABS-2020M1078478

PATIENT
  Age: 78 Year
  Sex: Male

DRUGS (11)
  1. IRINOTECAN [Suspect]
     Active Substance: IRINOTECAN
     Indication: PRODUCT USED FOR UNKNOWN INDICATION
     Dosage: UNK
  2. TAMSULOSIN [Concomitant]
     Active Substance: TAMSULOSIN
     Dosage: 400 MICROGRAM, QD, IN THE MORNING MEDICATION IN BLISTER PACK
  3. SERTRALINE [Concomitant]
     Active Substance: SERTRALINE HYDROCHLORIDE
     Dosage: 50 MILLIGRAM, QD,IN THE MORNING MEDICATION IN BLISTER PACK
  4. DALTEPARIN SODIUM [Concomitant]
     Active Substance: DALTEPARIN SODIUM
     Dosage: 15000 INTERNATIONAL UNIT, QD
     Route: 058
  5. ALLOPURINOL. [Concomitant]
     Active Substance: ALLOPURINOL
     Dosage: 100 MILLIGRAM, QD,AFTER FOOD IN THE MORNINGMEDICATION IN BLISTER PACK
  6. SIMVASTATIN. [Concomitant]
     Active Substance: SIMVASTATIN
     Dosage: 40 MILLIGRAM, QD,AT NIGHT MEDICATION IN BLISTER PACK
  7. DEXAMETHASONE. [Concomitant]
     Active Substance: DEXAMETHASONE
     Dosage: 8 MILLIGRAM, QD,FOR 3 DAYS ANTIEMETIC USE SHOULD NOW BE COMPLETED
  8. FLUOROURACIL. [Suspect]
     Active Substance: FLUOROURACIL
     Indication: PRODUCT USED FOR UNKNOWN INDICATION
     Dosage: UNK
  9. NATECAL D3 [Concomitant]
     Active Substance: CALCIUM CARBONATE\CHOLECALCIFEROL
     Dosage: 2 DOSAGE FORM, QD,NOT IN BLISTER PACK
  10. CETUXIMAB. [Suspect]
     Active Substance: CETUXIMAB
     Indication: PRODUCT USED FOR UNKNOWN INDICATION
     Dosage: UNK
  11. FEXOFENADINE [Concomitant]
     Active Substance: FEXOFENADINE HYDROCHLORIDE
     Dosage: 180 MILLIGRAM, QD

REACTIONS (2)
  - Neutropenic sepsis [Unknown]
  - Butterfly rash [Unknown]
